FAERS Safety Report 9554650 (Version 1)
Quarter: 2013Q3

REPORT INFORMATION
  Report Type: Spontaneous
  Country: GB (occurrence: GB)
  Receive Date: 20130925
  Receipt Date: 20130925
  Transmission Date: 20140515
  Serious: Yes (Other)
  Sender: FDA-Public Use
  Company Number: GB-PFIZER INC-2013273643

PATIENT
  Sex: Female

DRUGS (6)
  1. CHAMPIX [Suspect]
     Indication: SMOKING CESSATION THERAPY
     Dosage: 1 MG, 2X/DAY
     Route: 048
     Dates: start: 20130808, end: 20130905
  2. ESOMEPRAZOLE [Concomitant]
     Dosage: 40 MG, 1X/DAY
     Route: 048
  3. LOSARTAN [Concomitant]
     Dosage: 100 MG, 1X/DAY
     Route: 048
  4. SIMVASTATIN [Concomitant]
     Dosage: 40 MG, UNK
     Route: 048
  5. ASPIRIN [Concomitant]
     Dosage: 75 G, 3X/DAY
     Route: 048
  6. GABAPENTIN [Concomitant]
     Dosage: RECENTLY STARTED

REACTIONS (2)
  - Suicidal ideation [Unknown]
  - Feeling abnormal [Unknown]
